FAERS Safety Report 9861131 (Version 1)
Quarter: 2014Q1

REPORT INFORMATION
  Report Type: Spontaneous
  Country: US (occurrence: US)
  Receive Date: 20140202
  Receipt Date: 20140202
  Transmission Date: 20141002
  Serious: No
  Sender: FDA-Public Use
  Company Number: US-ALLERGAN-1303642US

PATIENT
  Age: 63 Year
  Sex: Female

DRUGS (2)
  1. BOTOX [Suspect]
     Indication: MIGRAINE
     Dosage: UNK UNK, SINGLE
     Route: 030
     Dates: start: 201301, end: 201301
  2. OTHER MEDICINES NOS [Concomitant]
     Indication: PRODUCT USED FOR UNKNOWN INDICATION

REACTIONS (2)
  - Migraine [Recovering/Resolving]
  - Drug ineffective [Unknown]
